FAERS Safety Report 7416340-8 (Version None)
Quarter: 2011Q2

REPORT INFORMATION
  Report Type: 
  Country: None (occurrence: None)
  Receive Date: 20110414
  Receipt Date: 20110412
  Transmission Date: 20111010
  Serious: Yes (Death, Other)
  Sender: FDA-Public Use
  Company Number: US-B.I. PHARMACEUTICALS,INC./RIDGEFIELD-2011-BP-10595BP

PATIENT
  Sex: Male

DRUGS (13)
  1. PRADAXA [Suspect]
     Indication: ATRIAL FIBRILLATION
     Route: 048
     Dates: end: 20110407
  2. TRAMADOL [Concomitant]
     Indication: TOOTHACHE
     Dosage: 50 MG
     Route: 048
     Dates: end: 20110407
  3. TYLENOL W/ CODEINE NO. 3 [Concomitant]
     Indication: TOOTHACHE
     Route: 048
     Dates: end: 20110407
  4. ULTRA-C [Concomitant]
     Route: 048
     Dates: end: 20110407
  5. ERYTHROMYCIN [Concomitant]
     Indication: TOOTH INFECTION
     Route: 048
     Dates: end: 20110407
  6. NITROFURONE [Concomitant]
     Indication: TOOTH INFECTION
     Dosage: 100 MG
     Route: 048
     Dates: end: 20110407
  7. NIASPAN [Concomitant]
     Indication: CARDIAC DISORDER
     Dosage: 750 MG
     Route: 048
     Dates: end: 20110407
  8. ZETIA [Concomitant]
     Dosage: 10 MG
     Route: 048
     Dates: end: 20110407
  9. CIPROFLOXACIN HCL [Concomitant]
     Indication: TOOTH INFECTION
     Dosage: 500 MG
     Route: 048
     Dates: end: 20110407
  10. FLECAINIDE ACETATE [Concomitant]
     Dosage: 100 MG
     Route: 048
     Dates: end: 20110407
  11. TAMSULOSIN [Concomitant]
     Dosage: 0.4 MG
     Route: 048
     Dates: end: 20110407
  12. FUROSEMIDE [Concomitant]
     Indication: CARDIAC FAILURE CONGESTIVE
     Dosage: 40 MG
     Route: 048
     Dates: end: 20110407
  13. MELOXICAM [Concomitant]
     Dosage: 7.5 MG
     Route: 048
     Dates: end: 20110407

REACTIONS (2)
  - MYOCARDIAL INFARCTION [None]
  - CARDIAC FAILURE CONGESTIVE [None]
